FAERS Safety Report 9383870 (Version 3)
Quarter: 2013Q3

REPORT INFORMATION
  Report Type: Report from Study
  Country: AR (occurrence: AR)
  Receive Date: 20130704
  Receipt Date: 20130801
  Transmission Date: 20140515
  Serious: Yes (Death)
  Sender: FDA-Public Use
  Company Number: AR-ROCHE-1245158

PATIENT
  Age: 73 Year
  Sex: Female
  Weight: 70 kg

DRUGS (4)
  1. AVASTIN [Suspect]
     Indication: OVARIAN CANCER
     Route: 042
     Dates: start: 20130604, end: 20130604
  2. AVASTIN [Suspect]
     Route: 065
  3. GEMCITABINE [Concomitant]
     Indication: OVARIAN CANCER
     Route: 042
     Dates: start: 20130611, end: 20130618
  4. CARBOPLATIN [Concomitant]
     Indication: OVARIAN CANCER
     Route: 042
     Dates: start: 20130612

REACTIONS (3)
  - Leukopenia [Fatal]
  - Thrombocytopenia [Fatal]
  - Lower gastrointestinal haemorrhage [Fatal]
